FAERS Safety Report 23765065 (Version 4)
Quarter: 2025Q1

REPORT INFORMATION
  Report Type: Report from Study
  Country: US (occurrence: US)
  Receive Date: 20240420
  Receipt Date: 20250212
  Transmission Date: 20250409
  Serious: Yes (Hospitalization)
  Sender: ABBVIE
  Company Number: US-ABBVIE-5725813

PATIENT
  Age: 24 Year
  Sex: Male
  Weight: 80.739 kg

DRUGS (4)
  1. RINVOQ [Suspect]
     Active Substance: UPADACITINIB
     Indication: Dermatitis atopic
     Dosage: FORM STRENGTH: 15 MILLIGRAM, THERAPY END DATE MAR 2024
     Route: 048
     Dates: start: 202403, end: 202403
  2. RINVOQ [Suspect]
     Active Substance: UPADACITINIB
     Indication: Dermatitis atopic
     Dosage: FORM STRENGTH: 15 MILLIGRAM, THERAPY END DATE 2024
     Route: 048
     Dates: start: 20240301, end: 202403
  3. RINVOQ [Suspect]
     Active Substance: UPADACITINIB
     Indication: Dermatitis atopic
     Dosage: FORM STRENGTH: 30 MILLIGRAM,
     Route: 048
     Dates: start: 202411
  4. EUCRISA [Concomitant]
     Active Substance: CRISABOROLE
     Indication: Product used for unknown indication

REACTIONS (16)
  - Influenza [Recovered/Resolved]
  - Skin warm [Recovered/Resolved]
  - Cough [Recovered/Resolved]
  - Eczema [Recovering/Resolving]
  - Weight decreased [Recovered/Resolved]
  - Heart rate increased [Recovered/Resolved]
  - Pain [Not Recovered/Not Resolved]
  - Alopecia [Recovered/Resolved]
  - Skin haemorrhage [Recovered/Resolved]
  - Acne [Recovering/Resolving]
  - Dermatitis atopic [Not Recovered/Not Resolved]
  - Illness [Recovered/Resolved]
  - Therapeutic product effect decreased [Unknown]
  - Sleep disorder [Unknown]
  - Pruritus [Recovered/Resolved]
  - Pain of skin [Recovered/Resolved]

NARRATIVE: CASE EVENT DATE: 20240101
